FAERS Safety Report 6766509-0 (Version None)
Quarter: 2010Q2

REPORT INFORMATION
  Report Type: 
  Country: None (occurrence: None)
  Receive Date: 20100611
  Receipt Date: 20100420
  Transmission Date: 20101027
  Serious: Yes (Hospitalization, Other)
  Sender: FDA-Public Use
  Company Number: US-BAYER-201012971NA

PATIENT
  Age: 29 Year
  Sex: Female
  Weight: 113 kg

DRUGS (8)
  1. YASMIN [Suspect]
     Indication: CONTRACEPTION
     Route: 048
     Dates: start: 20080101, end: 20080723
  2. YAZ [Suspect]
     Indication: DRUG USE FOR UNKNOWN INDICATION
     Route: 048
  3. OCELLA [Suspect]
     Indication: CONTRACEPTION
     Route: 048
     Dates: start: 20080724, end: 20091201
  4. AZITHROMYCIN [Concomitant]
     Dates: start: 20090303
  5. LEVOTHYROXINE SODIUM [Concomitant]
     Dates: start: 20090218
  6. FLUOXETINE [Concomitant]
     Indication: AFFECTIVE DISORDER
     Dates: start: 20070101, end: 20090101
  7. SYNTHROID [Concomitant]
  8. PROZAC [Concomitant]

REACTIONS (7)
  - ABDOMINAL PAIN UPPER [None]
  - CHOLECYSTITIS ACUTE [None]
  - CHOLELITHIASIS [None]
  - CONSTIPATION [None]
  - GALLBLADDER DISORDER [None]
  - NAUSEA [None]
  - VOMITING [None]
